FAERS Safety Report 13879525 (Version 1)
Quarter: 2017Q3

REPORT INFORMATION
  Report Type: Spontaneous
  Country: CN (occurrence: CN)
  Receive Date: 20170817
  Receipt Date: 20170817
  Transmission Date: 20171127
  Serious: Yes (Other)
  Sender: FDA-Public Use
  Company Number: CN-ROCHE-1976937

PATIENT
  Age: 43 Year
  Sex: Female
  Weight: 53 kg

DRUGS (3)
  1. METRONIDAZOLE. [Concomitant]
     Active Substance: METRONIDAZOLE
     Indication: URETHRITIS
     Route: 041
     Dates: start: 20170626, end: 20170627
  2. ROCEPHIN [Suspect]
     Active Substance: CEFTRIAXONE SODIUM
     Indication: PELVIC INFLAMMATORY DISEASE
     Route: 041
     Dates: start: 20170626, end: 20170627
  3. SODIUM CHLORIDE. [Concomitant]
     Active Substance: SODIUM CHLORIDE
     Route: 041
     Dates: start: 20170626, end: 20170627

REACTIONS (7)
  - Asthenia [Recovered/Resolved]
  - Pallor [Recovered/Resolved]
  - Agitation [Recovered/Resolved]
  - Chest discomfort [Recovered/Resolved]
  - Tachypnoea [Recovered/Resolved]
  - Hyperhidrosis [Recovered/Resolved]
  - Dizziness [Recovered/Resolved]

NARRATIVE: CASE EVENT DATE: 20170627
